FAERS Safety Report 17906838 (Version 1)
Quarter: 2020Q2

REPORT INFORMATION
  Report Type: Spontaneous
  Country: CA (occurrence: CA)
  Receive Date: 20200617
  Receipt Date: 20200617
  Transmission Date: 20200714
  Serious: Yes (Other)
  Sender: FDA-Public Use
  Company Number: CA-PFIZER INC-2020234602

PATIENT
  Age: 55 Year
  Sex: Male

DRUGS (2)
  1. MEZAVANT [Concomitant]
     Active Substance: MESALAMINE
     Dosage: UNK
     Route: 065
  2. XELJANZ [Suspect]
     Active Substance: TOFACITINIB CITRATE
     Indication: COLITIS ULCERATIVE
     Dosage: 5 MG, 2X/DAY
     Route: 048
     Dates: start: 20191211

REACTIONS (1)
  - Ankylosing spondylitis [Unknown]
